FAERS Safety Report 4282464-X (Version None)
Quarter: 2004Q1

REPORT INFORMATION
  Report Type: 
  Country: None (occurrence: None)
  Receive Date: 20040129
  Receipt Date: 20040116
  Transmission Date: 20041129
  Serious: Yes (Death)
  Sender: FDA-Public Use
  Company Number: US-JNJFOC-20040103198

PATIENT
  Age: 82 Year
  Sex: Female

DRUGS (10)
  1. INFLIXIMAB (INFLIXIMAB, RECOMBINANT) LYOPHILIZED POWDER [Suspect]
     Indication: RHEUMATOID ARTHRITIS
     Dosage: INTRAVENOUS
     Route: 042
     Dates: start: 20010328
  2. SYNTHROID [Concomitant]
  3. PROCARDIA XL [Concomitant]
  4. DITROPAN XL [Concomitant]
  5. FOLIC ACID [Concomitant]
  6. PLAQUENIL [Concomitant]
  7. VIOXX [Concomitant]
  8. MULTIVITAMIN [Concomitant]
  9. TYLENOL [Concomitant]
  10. DARVOCET (PROPACET) [Concomitant]

REACTIONS (1)
  - DEATH [None]
